FAERS Safety Report 8213982-7 (Version None)
Quarter: 2012Q1

REPORT INFORMATION
  Report Type: 
  Country: None (occurrence: None)
  Receive Date: 20120316
  Receipt Date: 20120314
  Transmission Date: 20120608
  Serious: No
  Sender: FDA-Public Use
  Company Number: US-PFIZER INC-2012068739

PATIENT
  Sex: Female
  Weight: 68.027 kg

DRUGS (4)
  1. CHANTIX [Suspect]
     Dosage: 0.5 MG, UNK
     Dates: start: 20120201, end: 20120101
  2. PLAVIX [Concomitant]
     Indication: BLOOD CHOLESTEROL INCREASED
     Dosage: UNK
     Dates: start: 20120201
  3. CHANTIX [Suspect]
     Indication: SMOKING CESSATION THERAPY
     Dosage: 0.5 MG, DAILY
     Dates: start: 20120222, end: 20120201
  4. ASPIRIN [Concomitant]
     Indication: ARTERIAL OCCLUSIVE DISEASE
     Dosage: 81 MG, UNK
     Dates: start: 20120201

REACTIONS (5)
  - NAUSEA [None]
  - ABNORMAL DREAMS [None]
  - DRY MOUTH [None]
  - DECREASED APPETITE [None]
  - INSOMNIA [None]
